FAERS Safety Report 18190731 (Version 1)
Quarter: 2020Q3

REPORT INFORMATION
  Report Type: Report from Study
  Country: US (occurrence: US)
  Receive Date: 20200824
  Receipt Date: 20200824
  Transmission Date: 20201103
  Serious: Yes (Death)
  Sender: FDA-Public Use
  Company Number: US-ASTRAZENECA-2020SF06725

PATIENT
  Age: 25560 Day
  Sex: Female

DRUGS (17)
  1. PEPCID [Concomitant]
     Active Substance: FAMOTIDINE
  2. NORCO [Concomitant]
     Active Substance: ACETAMINOPHEN\HYDROCODONE BITARTRATE
  3. FERROUS [Concomitant]
     Active Substance: IRON
  4. TAGRISSO [Suspect]
     Active Substance: OSIMERTINIB
     Indication: LUNG CARCINOMA CELL TYPE UNSPECIFIED STAGE 0
     Route: 048
  5. SEROQUEL [Suspect]
     Active Substance: QUETIAPINE FUMARATE
     Route: 048
  6. FLUTICASONE. [Concomitant]
     Active Substance: FLUTICASONE
  7. XYZAL [Concomitant]
     Active Substance: LEVOCETIRIZINE DIHYDROCHLORIDE
  8. FERROUS [Concomitant]
     Active Substance: IRON
  9. FOLIC ACID. [Concomitant]
     Active Substance: FOLIC ACID
  10. LEXAPRO [Concomitant]
     Active Substance: ESCITALOPRAM OXALATE
  11. MUCINEX [Concomitant]
     Active Substance: GUAIFENESIN
  12. TYLENOL [Concomitant]
     Active Substance: ACETAMINOPHEN
  13. LANTUS [Concomitant]
     Active Substance: INSULIN GLARGINE
  14. IBUPROFEN. [Concomitant]
     Active Substance: IBUPROFEN
  15. BUPROPION. [Concomitant]
     Active Substance: BUPROPION
  16. METFORMIN [Concomitant]
     Active Substance: METFORMIN HYDROCHLORIDE
  17. HUMULIN NOS [Concomitant]
     Active Substance: INSULIN HUMAN

REACTIONS (1)
  - Death [Fatal]

NARRATIVE: CASE EVENT DATE: 20200815
